FAERS Safety Report 23708806 (Version 2)
Quarter: 2024Q2

REPORT INFORMATION
  Report Type: Spontaneous
  Country: US (occurrence: US)
  Receive Date: 20240404
  Receipt Date: 20240430
  Transmission Date: 20240716
  Serious: Yes (Other)
  Sender: FDA-Public Use
  Company Number: US-TEVA-VS-3176183

PATIENT
  Age: 17 Year
  Sex: Female

DRUGS (6)
  1. LIDOCAINE [Suspect]
     Active Substance: LIDOCAINE
     Indication: Injection site pain
     Route: 061
  2. FENTANYL [Suspect]
     Active Substance: FENTANYL\FENTANYL CITRATE
     Indication: Drug abuse
     Route: 065
  3. NALOXONE [Concomitant]
     Active Substance: NALOXONE
     Indication: Drug use disorder
     Route: 065
  4. BUPRENORPHINE [Suspect]
     Active Substance: BUPRENORPHINE
     Indication: Drug use disorder
     Dosage: FOR 2 MONTHS
     Route: 058
  5. BUPRENORPHINE [Suspect]
     Active Substance: BUPRENORPHINE
     Indication: Drug use disorder
     Dosage: FOR 2 MONTHS
     Route: 058
  6. BUPRENORPHINE\NALOXONE [Concomitant]
     Active Substance: BUPRENORPHINE\NALOXONE
     Indication: Drug use disorder
     Dosage: 8-2 MG
     Route: 065

REACTIONS (10)
  - Drug abuse [Unknown]
  - Injection site pain [Unknown]
  - Constipation [Unknown]
  - Vomiting [Unknown]
  - Off label use [Unknown]
  - Tremor [Unknown]
  - Drug ineffective [Unknown]
  - Fatigue [Unknown]
  - Drug withdrawal syndrome [Unknown]
  - Nausea [Unknown]
